FAERS Safety Report 4748243-1 (Version None)
Quarter: 2005Q3

REPORT INFORMATION
  Report Type: 
  Country: None (occurrence: None)
  Receive Date: 20050818
  Receipt Date: 20050628
  Transmission Date: 20060218
  Serious: Yes (Disabling)
  Sender: FDA-Public Use
  Company Number: GB-ABBOTT-05P-167-0304821-00

PATIENT
  Sex: Male
  Weight: 55 kg

DRUGS (5)
  1. ERYTHROMYCIN BASE [Suspect]
     Indication: PNEUMONIA
     Route: 048
     Dates: start: 20050525, end: 20050608
  2. ERYTHROMYCIN BASE [Suspect]
     Indication: LOWER RESPIRATORY TRACT INFECTION
  3. AMOXICILLIN [Concomitant]
     Indication: COUGH
     Route: 048
     Dates: start: 20050401, end: 20050408
  4. LACTULOSE [Concomitant]
     Indication: COUGH
     Dosage: 20.1G/3.35G/5ML/15 ML BD
     Route: 048
     Dates: start: 20050418
  5. CLARITHROMYCIN [Concomitant]
     Indication: LOWER RESPIRATORY TRACT INFECTION
     Route: 048
     Dates: start: 20050610, end: 20050618

REACTIONS (2)
  - DEAFNESS BILATERAL [None]
  - TUBERCULOSIS [None]
